FAERS Safety Report 4601968-0 (Version None)
Quarter: 2005Q1

REPORT INFORMATION
  Report Type: 
  Country: None (occurrence: None)
  Receive Date: 20050131
  Receipt Date: 20041119
  Transmission Date: 20050727
  Serious: No
  Sender: FDA-Public Use
  Company Number: 200418993US

PATIENT
  Age: 74 Year
  Sex: Female

DRUGS (10)
  1. KETEK [Suspect]
     Indication: SINUSITIS
     Dosage: 400 (2 TABLETS) X 5 DAYS MG QD PO
     Route: 048
     Dates: start: 20041117
  2. LEVOCABASTINE HYDROCHLORIDE (LIVOSTIN) [Concomitant]
  3. ASPIRIN [Concomitant]
  4. LABETALOL HCL [Concomitant]
  5. REMERON [Concomitant]
  6. PREVACID [Concomitant]
  7. SIMVASTATIN [Concomitant]
  8. PROZAC [Concomitant]
  9. KLONOPIN [Concomitant]
  10. PRACETAMOL, DEXTROPROPOXYPHENE NAPSILATE (DARVOCET-N) [Concomitant]

REACTIONS (10)
  - ASTHENIA [None]
  - BURNING SENSATION [None]
  - DIZZINESS [None]
  - DRY EYE [None]
  - DRY MOUTH [None]
  - DYSPNOEA [None]
  - HEADACHE [None]
  - NASAL DRYNESS [None]
  - PAIN IN EXTREMITY [None]
  - TONGUE DISCOLOURATION [None]
